FAERS Safety Report 12893591 (Version 1)
Quarter: 2016Q4

REPORT INFORMATION
  Report Type: Spontaneous
  Country: US (occurrence: US)
  Receive Date: 20161028
  Receipt Date: 20161028
  Transmission Date: 20170207
  Serious: Yes (Other)
  Sender: FDA-Public Use
  Company Number: US-AMGEN-USASP2016149177

PATIENT
  Age: 73 Year
  Sex: Female

DRUGS (1)
  1. ENBREL [Suspect]
     Active Substance: ETANERCEPT
     Indication: PRODUCT USED FOR UNKNOWN INDICATION
     Dosage: UNK UNK, EVERY WEEK ON MONDAY
     Route: 065
     Dates: start: 2003

REACTIONS (8)
  - Colonoscopy [Unknown]
  - Ill-defined disorder [Unknown]
  - Pain [Unknown]
  - Mineral supplementation [Unknown]
  - Surgery [Unknown]
  - Endoscopy [Unknown]
  - Drug dose omission [Unknown]
  - Skin cancer [Unknown]

NARRATIVE: CASE EVENT DATE: 2015
